FAERS Safety Report 20376415 (Version 2)
Quarter: 2022Q1

REPORT INFORMATION
  Report Type: Report from Study
  Country: US (occurrence: US)
  Receive Date: 20220125
  Receipt Date: 20220210
  Transmission Date: 20220423
  Serious: Yes (Other)
  Sender: FDA-Public Use
  Company Number: US-GLAXOSMITHKLINE-US2022AMR006245

PATIENT
  Age: 78 Year
  Sex: Female

DRUGS (1)
  1. BELANTAMAB MAFODOTIN [Suspect]
     Active Substance: BELANTAMAB MAFODOTIN
     Indication: Product used for unknown indication
     Dosage: UNK
     Dates: start: 20211130, end: 20220111

REACTIONS (3)
  - Blindness [Unknown]
  - Visual acuity reduced [Not Recovered/Not Resolved]
  - Keratopathy [Unknown]

NARRATIVE: CASE EVENT DATE: 20220111
